FAERS Safety Report 4485198-1 (Version None)
Quarter: 2004Q4

REPORT INFORMATION
  Report Type: 
  Country: None (occurrence: None)
  Receive Date: 20041026
  Receipt Date: 20040419
  Transmission Date: 20050328
  Serious: No
  Sender: FDA-Public Use
  Company Number: US-BRISTOL-MYERS SQUIBB COMPANY-12564456

PATIENT
  Age: 68 Year
  Sex: Female
  Weight: 63 kg

DRUGS (8)
  1. GLUCOPHAGE XR [Suspect]
     Indication: DIABETES MELLITUS
     Dosage: DECREASED TO 1000 MG/DAY IN OCT-2003
     Route: 048
     Dates: start: 20020201
  2. ZETIA [Concomitant]
  3. MONOPRIL [Concomitant]
  4. HYDROCORTISONE [Concomitant]
  5. ESTROGEN PATCH [Concomitant]
  6. ASPIRIN [Concomitant]
  7. MULTI-VITAMIN [Concomitant]
  8. CALCIUM [Concomitant]

REACTIONS (2)
  - DYSPNOEA [None]
  - RASH [None]
